FAERS Safety Report 26019241 (Version 1)
Quarter: 2025Q4

REPORT INFORMATION
  Report Type: Spontaneous
  Country: EU (occurrence: EU)
  Receive Date: 20251110
  Receipt Date: 20251110
  Transmission Date: 20260117
  Serious: Yes (Other)
  Sender: TEVA
  Company Number: None

PATIENT
  Age: 59 Year
  Sex: Male
  Weight: 75 kg

DRUGS (1)
  1. QUETIAPINE [Suspect]
     Active Substance: QUETIAPINE
     Indication: Depressed mood
     Dosage: 1 PIECE ONCE A DAY; TABLET FO / BRAND NAME NOT SPECIFIED
     Route: 048
     Dates: start: 20251001, end: 20251013

REACTIONS (1)
  - Suicidal ideation [Recovered/Resolved]
